FAERS Safety Report 25395646 (Version 3)
Quarter: 2025Q4

REPORT INFORMATION
  Report Type: Spontaneous
  Country: US (occurrence: None)
  Receive Date: 20250604
  Receipt Date: 20251029
  Transmission Date: 20260117
  Serious: Yes (Hospitalization, Other)
  Sender: UCB
  Company Number: US-UCBSA-2025032523

PATIENT
  Age: 55 Year
  Weight: 135.15 kg

DRUGS (1)
  1. BIMZELX [Suspect]
     Active Substance: BIMEKIZUMAB-BKZX
     Indication: Psoriasis
     Dosage: 320 MILLIGRAM, EV 4 WEEKS

REACTIONS (4)
  - Myocardial infarction [Unknown]
  - Cardiac operation [Unknown]
  - Product dose omission issue [Unknown]
  - Intentional dose omission [Unknown]
